FAERS Safety Report 6095120-2 (Version None)
Quarter: 2009Q1

REPORT INFORMATION
  Report Type: 
  Country: None (occurrence: None)
  Receive Date: 20090227
  Receipt Date: 20080215
  Transmission Date: 20090719
  Serious: No
  Sender: FDA-Public Use
  Company Number: A0704919A

PATIENT
  Age: 48 Year
  Sex: Male
  Weight: 86.4 kg

DRUGS (4)
  1. LAMICTAL [Suspect]
     Dosage: 200MG UNKNOWN
     Route: 048
  2. TRAVATAN [Concomitant]
  3. VITAMINS [Concomitant]
  4. ASPIRIN [Concomitant]

REACTIONS (1)
  - DIZZINESS [None]
